FAERS Safety Report 4898318-1 (Version None)
Quarter: 2006Q1

REPORT INFORMATION
  Report Type: 
  Country: None (occurrence: None)
  Receive Date: 20060127
  Receipt Date: 20060112
  Transmission Date: 20060701
  Serious: Yes (Hospitalization, Other)
  Sender: FDA-Public Use
  Company Number: US200512000739

PATIENT
  Age: 57 Year
  Sex: Male

DRUGS (2)
  1. CIALIS [Suspect]
     Dosage: 20 MG,
     Dates: start: 20051127
  2. FLOMAX [Suspect]

REACTIONS (2)
  - DRUG INTERACTION [None]
  - PRIAPISM [None]
